FAERS Safety Report 4659865-0 (Version None)
Quarter: 2005Q2

REPORT INFORMATION
  Report Type: 
  Country: None (occurrence: None)
  Receive Date: 20050510
  Receipt Date: 20050105
  Transmission Date: 20051028
  Serious: Yes (Hospitalization)
  Sender: FDA-Public Use
  Company Number: PAR_0024_2005

PATIENT
  Age: 65 Year
  Sex: Female

DRUGS (8)
  1. ISOPTIN [Suspect]
     Dosage: DF PO
     Route: 048
  2. ACETYLLEUCINE [Suspect]
     Indication: VERTIGO
     Dosage: DF PO
     Route: 048
     Dates: start: 20041207, end: 20041223
  3. ATORVASTATIN CALCIUM [Suspect]
     Dosage: DF PO
     Route: 048
  4. HYZAAR [Suspect]
     Dosage: DF PO
     Route: 048
  5. GLICLAZIDE [Suspect]
     Dosage: DF PO
     Route: 048
  6. TERBINAFINE [Suspect]
     Indication: ONYCHOMYCOSIS
     Dosage: 1 TAB QDAY PO
     Route: 048
     Dates: start: 20041207, end: 20041220
  7. DIHYDROERGOTAMINE MESYLATE [Concomitant]
  8. TRIMETAZIDINE [Concomitant]

REACTIONS (1)
  - ACUTE GENERALISED EXANTHEMATOUS PUSTULOSIS [None]
